FAERS Safety Report 21247254 (Version 1)
Quarter: 2022Q3

REPORT INFORMATION
  Report Type: Spontaneous
  Country: US (occurrence: US)
  Receive Date: 20220824
  Receipt Date: 20220824
  Transmission Date: 20221026
  Serious: No
  Sender: FDA-Public Use
  Company Number: US-GSK-US2022122035

PATIENT
  Age: 77 Year
  Sex: Male

DRUGS (1)
  1. TRELEGY ELLIPTA [Suspect]
     Active Substance: FLUTICASONE FUROATE\UMECLIDINIUM BROMIDE\VILANTEROL TRIFENATATE
     Indication: Product used for unknown indication
     Dosage: UNK,  100/62.5/25 MCG
     Dates: start: 20180101

REACTIONS (5)
  - SARS-CoV-2 test positive [Not Recovered/Not Resolved]
  - Pyrexia [Unknown]
  - Cough [Unknown]
  - Rhinorrhoea [Unknown]
  - Arthralgia [Unknown]

NARRATIVE: CASE EVENT DATE: 20220818
